FAERS Safety Report 7911153-2 (Version None)
Quarter: 2011Q4

REPORT INFORMATION
  Report Type: 
  Country: None (occurrence: None)
  Receive Date: 20111114
  Receipt Date: 20111102
  Transmission Date: 20120403
  Serious: No
  Sender: FDA-Public Use
  Company Number: US-JNJFOC-20111101468

PATIENT
  Sex: Female
  Weight: 64.86 kg

DRUGS (4)
  1. DURAGESIC-100 [Suspect]
     Dosage: 12.5 UG/HR+25 UG/HR
     Route: 062
     Dates: start: 20090101, end: 20111001
  2. DURAGESIC-100 [Suspect]
     Indication: PAIN
     Dosage: 12.5 UG/HR+25 UG/HR
     Route: 062
     Dates: start: 20070101, end: 20090101
  3. LEVOTHYROXINE SODIUM [Concomitant]
     Indication: THYROID DISORDER
     Route: 048
     Dates: start: 19860101
  4. DURAGESIC-100 [Suspect]
     Dosage: 12.5 UG/HR+25 UG/HR
     Route: 062

REACTIONS (5)
  - WRONG TECHNIQUE IN DRUG USAGE PROCESS [None]
  - DRUG INEFFECTIVE [None]
  - DRUG ADMINISTERED AT INAPPROPRIATE SITE [None]
  - WITHDRAWAL SYNDROME [None]
  - PRODUCT QUALITY ISSUE [None]
